FAERS Safety Report 18443406 (Version 1)
Quarter: 2020Q4

REPORT INFORMATION
  Report Type: Spontaneous
  Country: IT (occurrence: IT)
  Receive Date: 20201030
  Receipt Date: 20201030
  Transmission Date: 20210114
  Serious: Yes (Hospitalization, Other)
  Sender: FDA-Public Use
  Company Number: IT-AUROBINDO-AUR-APL-2020-053455

PATIENT
  Age: 88 Year
  Sex: Male

DRUGS (4)
  1. CARDIOASPIRIN [Suspect]
     Active Substance: ASPIRIN
     Indication: ARTERIOSCLEROSIS
     Dosage: 100 MILLIGRAM, ONCE A DAY
     Route: 048
     Dates: end: 20200726
  2. ATORVASTATIN [Concomitant]
     Active Substance: ATORVASTATIN
     Indication: PRODUCT USED FOR UNKNOWN INDICATION
     Dosage: UNK
     Route: 065
  3. CLOPIDOGREL [Suspect]
     Active Substance: CLOPIDOGREL BISULFATE
     Indication: ARTERIOSCLEROSIS
     Dosage: 1 DOSAGE FORM, ONCE A DAY
     Route: 048
     Dates: end: 20200726
  4. XANAX [Concomitant]
     Active Substance: ALPRAZOLAM
     Indication: PRODUCT USED FOR UNKNOWN INDICATION
     Dosage: UNK
     Route: 065

REACTIONS (3)
  - Drug interaction [Recovering/Resolving]
  - Head injury [Recovering/Resolving]
  - Subdural haematoma [Recovering/Resolving]

NARRATIVE: CASE EVENT DATE: 20200724
